FAERS Safety Report 16222510 (Version 1)
Quarter: 2019Q2

REPORT INFORMATION
  Report Type: Spontaneous
  Country: US (occurrence: US)
  Receive Date: 20190419
  Receipt Date: 20190419
  Transmission Date: 20190711
  Serious: No
  Sender: FDA-Public Use
  Company Number: None

PATIENT
  Age: 81 Year
  Sex: Female
  Weight: 63 kg

DRUGS (6)
  1. ARICEPT 10MG [Concomitant]
  2. NEULASTA [Concomitant]
     Active Substance: PEGFILGRASTIM
  3. NAMENDA 10MG [Concomitant]
  4. TYLENOL 8HR ARTHRITIS 650MG [Concomitant]
  5. CAPECITABINE. [Suspect]
     Active Substance: CAPECITABINE
     Indication: COLON CANCER
     Route: 048
     Dates: start: 20190103, end: 20190419
  6. ASPIRIN 81MG [Concomitant]
     Active Substance: ASPIRIN

REACTIONS (1)
  - Disease progression [None]

NARRATIVE: CASE EVENT DATE: 20190419
